FAERS Safety Report 7272539-5 (Version None)
Quarter: 2011Q1

REPORT INFORMATION
  Report Type: 
  Country: None (occurrence: None)
  Receive Date: 20110203
  Receipt Date: 20110126
  Transmission Date: 20110831
  Serious: Yes (Hospitalization)
  Sender: FDA-Public Use
  Company Number: US-ROCHE-756458

PATIENT
  Age: 92 Year
  Sex: Female

DRUGS (1)
  1. BONIVA [Suspect]
     Dosage: DRUG STARTED IN FALL
     Route: 048

REACTIONS (3)
  - DYSPEPSIA [None]
  - OESOPHAGEAL STENOSIS [None]
  - DIZZINESS [None]
